FAERS Safety Report 9341810 (Version 1)
Quarter: 2013Q2

REPORT INFORMATION
  Report Type: Spontaneous
  Country: US (occurrence: None)
  Receive Date: 20130606
  Receipt Date: 20130606
  Transmission Date: 20140414
  Serious: Yes (Hospitalization)
  Sender: FDA-Public Use
  Company Number: 2013NUEUSA00199

PATIENT
  Age: 71 Year
  Sex: Male

DRUGS (1)
  1. NUEDEXTA [Suspect]
     Indication: CRYING
     Dates: start: 20130124

REACTIONS (2)
  - Cerebrovascular accident [None]
  - Infection [None]
